FAERS Safety Report 8785424 (Version 2)
Quarter: 2012Q4

REPORT INFORMATION
  Report Type: 
  Country: US (occurrence: US)
  Receive Date: 20120914
  Receipt Date: 20121002
  Transmission Date: 20130627
  Serious: Yes (Hospitalization)
  Sender: FDA-Public Use
  Company Number: US-009507513-1209USA005052

PATIENT
  Age: 24 Year
  Sex: Male

DRUGS (7)
  1. SAPHRIS [Suspect]
     Indication: DEPRESSION
     Dosage: UNK
     Route: 060
     Dates: start: 20120906, end: 20120906
  2. SAPHRIS [Suspect]
     Indication: GENERALISED ANXIETY DISORDER
  3. KLONOPIN [Concomitant]
  4. XANAX [Concomitant]
  5. SEROQUEL [Concomitant]
  6. DILAUDID [Concomitant]
  7. MS CONTIN [Concomitant]

REACTIONS (2)
  - Road traffic accident [Recovering/Resolving]
  - Anterograde amnesia [Recovering/Resolving]
